FAERS Safety Report 7063085-2 (Version None)
Quarter: 2010Q4

REPORT INFORMATION
  Report Type: 
  Country: None (occurrence: None)
  Receive Date: 20101026
  Receipt Date: 20100428
  Transmission Date: 20110411
  Serious: Yes (Other)
  Sender: FDA-Public Use
  Company Number: US-PFIZER INC-2010039342

PATIENT
  Sex: Female

DRUGS (4)
  1. LIPITOR [Suspect]
     Dosage: UNK
     Route: 048
  2. PROTONIX [Concomitant]
     Indication: HYPERCHLORHYDRIA
     Dosage: UNK
     Route: 048
  3. ULTRAM [Concomitant]
     Indication: BACK DISORDER
     Dosage: UNK
     Route: 048
  4. XANAX [Concomitant]
     Dosage: UNK
     Route: 048

REACTIONS (1)
  - MEMORY IMPAIRMENT [None]
